FAERS Safety Report 10044343 (Version 2)
Quarter: 2014Q2

REPORT INFORMATION
  Report Type: Spontaneous
  Country: US (occurrence: US)
  Receive Date: 20140328
  Receipt Date: 20140415
  Transmission Date: 20141212
  Serious: Yes (Other)
  Sender: FDA-Public Use
  Company Number: US-PFIZER INC-2014084089

PATIENT
  Age: 55 Year
  Sex: Female

DRUGS (2)
  1. SUTENT [Suspect]
     Indication: NEOPLASM MALIGNANT
     Dosage: UNK, CYCLIC
  2. CALCIUM [Concomitant]
     Dosage: UNK

REACTIONS (5)
  - Pulmonary oedema [Unknown]
  - Haemoptysis [Unknown]
  - Blood urine present [Unknown]
  - Disease progression [Unknown]
  - Neoplasm malignant [Unknown]
